FAERS Safety Report 14940101 (Version 11)
Quarter: 2018Q3

REPORT INFORMATION
  Report Type: Report from Study
  Country: DE (occurrence: DE)
  Receive Date: 20180525
  Receipt Date: 20180906
  Transmission Date: 20181010
  Serious: Yes (Hospitalization)
  Sender: FDA-Public Use
  Company Number: DE-PFIZER INC-2018157409

PATIENT
  Age: 71 Year
  Sex: Male
  Weight: 96 kg

DRUGS (19)
  1. ACLIDINIUM BROMIDE/FORMOTEROL FUMARATE [Concomitant]
     Dosage: 340 MEQ, UNK
     Dates: start: 201401
  2. TAMSULOSIN HYDROCHLORIDE. [Concomitant]
     Active Substance: TAMSULOSIN HYDROCHLORIDE
     Dosage: 0.4 DF, UNK
     Route: 048
     Dates: start: 201701
  3. FORTECORTIN [DEXAMETHASONE SODIUM PHOSPHATE] [Concomitant]
     Indication: ARTHRITIS
     Dosage: 8 MG, UNK
     Dates: start: 20171218, end: 20171218
  4. PEMBROLIZUMAB. [Suspect]
     Active Substance: PEMBROLIZUMAB
     Indication: RENAL CELL CARCINOMA
     Dosage: 200 MG, EVERY 3 WEEKS (Q3W) (VOLUME OF INJECTION: 108 ML)
     Route: 042
     Dates: start: 20170612, end: 20171106
  5. SILDENAFIL CITRATE. [Concomitant]
     Active Substance: SILDENAFIL CITRATE
     Dosage: 50 MG, UNK
     Route: 048
     Dates: start: 20160101
  6. AMLODIPINE [Concomitant]
     Active Substance: AMLODIPINE BESYLATE
     Dosage: 5 MG, UNK
     Dates: start: 20171111, end: 20180119
  7. FORTECORTIN [DEXAMETHASONE SODIUM PHOSPHATE] [Concomitant]
     Dosage: 4 MG, UNK
     Dates: start: 20171219, end: 20171219
  8. FORTECORTIN [DEXAMETHASONE SODIUM PHOSPHATE] [Concomitant]
     Dosage: 2 MG, UNK
     Dates: start: 20171220, end: 20171226
  9. AXITINIB [Suspect]
     Active Substance: AXITINIB
     Indication: RENAL CELL CARCINOMA
     Dosage: 5 MG, 2X/DAY
     Route: 048
     Dates: start: 20170612, end: 20171217
  10. ZOLPIDEM [Concomitant]
     Active Substance: ZOLPIDEM\ZOLPIDEM TARTRATE
     Dosage: 10 MG, UNK
     Route: 048
     Dates: start: 20150101
  11. IBUPROFEN. [Concomitant]
     Active Substance: IBUPROFEN
     Dosage: 600 MG, UNK
     Route: 048
     Dates: start: 20171123
  12. AXITINIB [Suspect]
     Active Substance: AXITINIB
     Dosage: 5 MG, 2X/DAY
     Route: 048
     Dates: start: 20171218, end: 20180107
  13. PEMBROLIZUMAB. [Suspect]
     Active Substance: PEMBROLIZUMAB
     Dosage: 200 MG, EVERY 3 WEEKS (Q3W) (CYCLE 16)
     Route: 042
     Dates: start: 20180108, end: 20180424
  14. PANTHENOL [Concomitant]
     Active Substance: PANTHENOL
     Dosage: 5 %, UNK
     Route: 061
     Dates: start: 20170822
  15. AXITINIB [Suspect]
     Active Substance: AXITINIB
     Dosage: 5 MG, 2X/DAY (CYCLE 16)
     Route: 048
     Dates: start: 20180108, end: 20180514
  16. PEMBROLIZUMAB. [Suspect]
     Active Substance: PEMBROLIZUMAB
     Dosage: 200 MG, EVERY 3 WEEKS (Q3W)
     Route: 042
     Dates: start: 20171127, end: 20171127
  17. GENTIAN VIOLET [Concomitant]
     Active Substance: GENTIAN VIOLET
     Dosage: 1 %, UNK
     Route: 061
     Dates: start: 20170822
  18. INDERM [Concomitant]
     Dosage: 4 %, UNK
     Route: 061
     Dates: start: 20170904
  19. FORTECORTIN [DEXAMETHASONE SODIUM PHOSPHATE] [Concomitant]
     Dosage: 1 MG, UNK
     Dates: start: 20171227, end: 20180102

REACTIONS (2)
  - Dyspnoea exertional [Recovered/Resolved]
  - Pneumonitis [Not Recovered/Not Resolved]

NARRATIVE: CASE EVENT DATE: 20180101
